FAERS Safety Report 4289737-5 (Version None)
Quarter: 2004Q1

REPORT INFORMATION
  Report Type: 
  Country: None (occurrence: None)
  Receive Date: 20040209
  Receipt Date: 20040122
  Transmission Date: 20041129
  Serious: Yes (Hospitalization)
  Sender: FDA-Public Use
  Company Number: 2004BL000556

PATIENT
  Sex: Female

DRUGS (1)
  1. MINIMS TROPICAMIDE 1.0% (MINIMS TROPICAMIDE 1.0%) [Suspect]
     Dosage: OPHTHALMIC
     Route: 047

REACTIONS (1)
  - ANGLE CLOSURE GLAUCOMA [None]
